FAERS Safety Report 12306463 (Version 1)
Quarter: 2016Q2

REPORT INFORMATION
  Report Type: Spontaneous
  Country: US (occurrence: US)
  Receive Date: 20160426
  Receipt Date: 20160426
  Transmission Date: 20160815
  Serious: No
  Sender: FDA-Public Use
  Company Number: US-OREXO US, INC.-ORE201604-000052

PATIENT
  Age: 5 Month
  Sex: Female
  Weight: 7.72 kg

DRUGS (2)
  1. ZUBSOLV [Suspect]
     Active Substance: BUPRENORPHINE HYDROCHLORIDE\NALOXONE HYDROCHLORIDE
     Indication: DRUG DEPENDENCE
     Dosage: 5.7 MG/1.4MG ?3 TO 3/2 TIMES A DAY?
     Dates: start: 201603, end: 201603
  2. ZUBSOLV [Suspect]
     Active Substance: BUPRENORPHINE HYDROCHLORIDE\NALOXONE HYDROCHLORIDE
     Dosage: 8.6 MG/2.1 MG
     Dates: start: 20160326

REACTIONS (3)
  - Irritability [Not Recovered/Not Resolved]
  - Exposure during breast feeding [Unknown]
  - Hypersomnia [Not Recovered/Not Resolved]

NARRATIVE: CASE EVENT DATE: 201603
